FAERS Safety Report 11896069 (Version 1)
Quarter: 2016Q1

REPORT INFORMATION
  Report Type: Spontaneous
  Country: US (occurrence: US)
  Receive Date: 20160107
  Receipt Date: 20160107
  Transmission Date: 20160526
  Serious: No
  Sender: FDA-Public Use
  Company Number: US-PFIZER INC-2015450776

PATIENT
  Age: 49 Year
  Sex: Male
  Weight: 104 kg

DRUGS (1)
  1. PRISTIQ EXTENDED RELEASE [Suspect]
     Active Substance: DESVENLAFAXINE SUCCINATE
     Indication: DEPRESSION
     Dosage: 50 MG, DAILY
     Dates: start: 20151210

REACTIONS (9)
  - Pre-existing condition improved [Unknown]
  - Drug dose omission [Unknown]
  - Malaise [Unknown]
  - Drug withdrawal syndrome [Unknown]
  - Abnormal behaviour [Unknown]
  - Anger [Unknown]
  - Increased appetite [Unknown]
  - Therapeutic response unexpected [Unknown]
  - Weight increased [Unknown]
